FAERS Safety Report 4534449-3 (Version None)
Quarter: 2004Q4

REPORT INFORMATION
  Report Type: 
  Country: None (occurrence: None)
  Receive Date: 20041214
  Receipt Date: 20041101
  Transmission Date: 20050328
  Serious: No
  Sender: FDA-Public Use
  Company Number: 2004242763US

PATIENT
  Age: 78 Year
  Sex: Female
  Weight: 80.7 kg

DRUGS (2)
  1. BEXTRA [Suspect]
     Dosage: 10 MG, QD
     Dates: start: 20041026, end: 20041028
  2. ALTACE [Concomitant]

REACTIONS (4)
  - ASTHMA [None]
  - CHEST PAIN [None]
  - PAIN [None]
  - PHARYNGOLARYNGEAL PAIN [None]
